FAERS Safety Report 9505570 (Version 1)
Quarter: 2013Q1

REPORT INFORMATION
  Report Type: Spontaneous
  Country: US (occurrence: None)
  Receive Date: 20130220
  Receipt Date: 20130220
  Transmission Date: 20140127
  Serious: No
  Sender: FDA-Public Use
  Company Number: 1000039826

PATIENT
  Age: 45 Year
  Sex: Female

DRUGS (7)
  1. VIIBRYD (VILAZODONE HYDROCHLORIDE) [Suspect]
     Indication: DEPRESSION
     Dosage: 10 MG (10MG, 1 IN 1D), ORAL
     Dates: start: 20121024, end: 20121030
  2. VIIBRYD [Suspect]
     Dosage: 40 MG (40MG, 1 IN 1 D), ORAL
     Dates: start: 20121107, end: 20121107
  3. VIIBRYD [Suspect]
     Indication: ANXIETY
     Dosage: 20 MG (20MG, 1 IN 1 D) ORAL
     Dates: start: 20121031, end: 20121106
  4. VIIBRYD (VILAZODONE HYDROCHLORIDE) [Suspect]
     Indication: ANXIETY
     Dosage: 20MG (20 MG, 1 IN 1 D) ORAL
     Dates: start: 20121108
  5. MELATONIN (MELATONIN) (MELATONIN) [Concomitant]
  6. CLARITIN (CLARITIN) (CLARITAN) [Concomitant]
  7. MAXALT (RIZATRIPTAN) [Concomitant]

REACTIONS (3)
  - Abdominal pain upper [None]
  - Diarrhoea [None]
  - Drug effect increased [None]
